FAERS Safety Report 10204186 (Version 1)
Quarter: 2014Q2

REPORT INFORMATION
  Report Type: Spontaneous
  Country: US (occurrence: None)
  Receive Date: 20140527
  Receipt Date: 20140527
  Transmission Date: 20141212
  Serious: Yes (Hospitalization)
  Sender: FDA-Public Use
  Company Number: None

PATIENT
  Age: 56 Year
  Sex: Male

DRUGS (9)
  1. KETOROLAC [Suspect]
     Indication: PAIN
     Dosage: 20-40 MG ?PO
     Route: 048
     Dates: start: 20120317, end: 20120317
  2. ALLOPURINOL [Concomitant]
  3. DOCUSATE [Concomitant]
  4. PREGABALIN [Concomitant]
  5. PROVASTATIN [Concomitant]
  6. RANITIDINE [Concomitant]
  7. INSULIN GLORGINE [Concomitant]
  8. PREDNISONE [Concomitant]
  9. TACROLIMUS [Concomitant]

REACTIONS (12)
  - Gastrointestinal haemorrhage [None]
  - Dizziness [None]
  - Hyperglycaemia [None]
  - Dyspnoea exertional [None]
  - Palpitations [None]
  - Treatment noncompliance [None]
  - Drug dose omission [None]
  - Headache [None]
  - Polyuria [None]
  - Dysuria [None]
  - Gastric ulcer [None]
  - Haemoglobin decreased [None]
